FAERS Safety Report 11834037 (Version 1)
Quarter: 2015Q4

REPORT INFORMATION
  Report Type: Spontaneous
  Country: RS (occurrence: RS)
  Receive Date: 20151214
  Receipt Date: 20151214
  Transmission Date: 20160305
  Serious: Yes (Death, Life-Threatening, Hospitalization, Disabling, Other)
  Sender: FDA-Public Use
  Company Number: RS-GILEAD-2015-0187502

PATIENT
  Age: 72 Year
  Sex: Male
  Weight: 60 kg

DRUGS (6)
  1. VIREAD [Suspect]
     Active Substance: TENOFOVIR DISOPROXIL FUMARATE
     Indication: CHRONIC HEPATITIS B
     Dosage: 245 MG, UNK
     Route: 050
     Dates: start: 201212, end: 201511
  2. SPIRONOLACTONE. [Concomitant]
     Active Substance: SPIRONOLACTONE
     Indication: ASCITES
     Dosage: 25 MG, UNK
     Dates: start: 20150917, end: 20151105
  3. LASIX [Concomitant]
     Active Substance: FUROSEMIDE
     Indication: ASCITES
     Dosage: 20 UNK, UNK
     Dates: start: 20150917, end: 20151105
  4. HUMAN ALBUMIN [Concomitant]
     Active Substance: ALBUMIN (HUMAN)
     Indication: HEPATITIS
  5. HEPA-MERZ                          /01390204/ [Concomitant]
     Indication: ENCEPHALOPATHY
     Dosage: UNK
     Route: 042
     Dates: start: 20150917, end: 20151105
  6. TRODON                             /00599201/ [Concomitant]
     Indication: ANALGESIC THERAPY
     Dosage: UNK
     Dates: start: 20150917, end: 20151105

REACTIONS (1)
  - Drug ineffective [Fatal]
